FAERS Safety Report 22263674 (Version 1)
Quarter: 2023Q2

REPORT INFORMATION
  Report Type: Spontaneous
  Country: US (occurrence: US)
  Receive Date: 20230428
  Receipt Date: 20230428
  Transmission Date: 20230721
  Serious: No
  Sender: FDA-Public Use
  Company Number: US-TARO PHARMACEUTICALS USA INC.-2023TAR00253

PATIENT

DRUGS (2)
  1. FLUOROURACIL [Suspect]
     Active Substance: FLUOROURACIL
     Indication: Photosensitivity reaction
     Dosage: UNK, BID, FOREHEAD, CHEEKS AND EARS. ARMS AND HEAD
     Route: 061
     Dates: start: 20230219
  2. FLUOROURACIL [Suspect]
     Active Substance: FLUOROURACIL
     Indication: Precancerous condition

REACTIONS (5)
  - Blister rupture [Recovering/Resolving]
  - Skin wound [Recovering/Resolving]
  - Pain [Recovering/Resolving]
  - Blister [Recovering/Resolving]
  - Insomnia [Recovering/Resolving]

NARRATIVE: CASE EVENT DATE: 20230227
